FAERS Safety Report 4985623-3 (Version None)
Quarter: 2006Q2

REPORT INFORMATION
  Report Type: 
  Country: None (occurrence: None)
  Receive Date: 20060428
  Receipt Date: 20060412
  Transmission Date: 20061013
  Serious: Yes (Hospitalization, Other)
  Sender: FDA-Public Use
  Company Number: PHEH2006US04872

PATIENT
  Age: 80 Year
  Sex: Male

DRUGS (7)
  1. EXJADE [Suspect]
     Indication: BLOOD IRON INCREASED
     Dosage: 500 MG, QID
     Route: 048
     Dates: start: 20060121
  2. LIPITOR [Concomitant]
  3. ASPIRIN [Concomitant]
  4. CLOPIDOGREL [Concomitant]
  5. SYNTHROID [Concomitant]
  6. MULTIVITAMIN [Concomitant]
  7. VITAMIN E [Concomitant]

REACTIONS (3)
  - BILE DUCT CANCER [None]
  - JAUNDICE [None]
  - LIVER DISORDER [None]
